FAERS Safety Report 5994354-2 (Version None)
Quarter: 2008Q4

REPORT INFORMATION
  Report Type: 
  Country: None (occurrence: None)
  Receive Date: 20081212
  Receipt Date: 20080908
  Transmission Date: 20090506
  Serious: No
  Sender: FDA-Public Use
  Company Number: US-ABBOTT-08P-163-0474989-00

PATIENT
  Sex: Female
  Weight: 56.75 kg

DRUGS (3)
  1. HUMIRA [Suspect]
     Indication: OSTEOARTHRITIS
     Route: 050
     Dates: start: 20061201, end: 20080828
  2. PREDNISONE TAB [Concomitant]
     Indication: OSTEOARTHRITIS
     Dosage: 5 MG DAILY
     Route: 048
     Dates: start: 20080401
  3. ALENDRONATE SODIUM [Concomitant]
     Indication: OSTEOARTHRITIS
     Route: 048

REACTIONS (9)
  - ARTHRITIS [None]
  - HYPOPHAGIA [None]
  - ORAL CANDIDIASIS [None]
  - PALMAR ERYTHEMA [None]
  - RASH MACULAR [None]
  - RASH PRURITIC [None]
  - SKIN DISCOLOURATION [None]
  - TREMOR [None]
  - URTICARIA [None]
